FAERS Safety Report 8159746-4 (Version None)
Quarter: 2012Q1

REPORT INFORMATION
  Report Type: 
  Country: None (occurrence: None)
  Receive Date: 20120223
  Receipt Date: 20120213
  Transmission Date: 20120608
  Serious: Yes (Hospitalization, Other)
  Sender: FDA-Public Use
  Company Number: US-BRISTOL-MYERS SQUIBB COMPANY-16376170

PATIENT
  Age: 67 Year
  Sex: Female

DRUGS (27)
  1. VITAMIN B6 [Concomitant]
     Dosage: TAB
  2. TRIAMTERENE AND HYDROCHLOROTHIAZIDE [Concomitant]
     Dosage: 37.5 MG - 25MG CAP
  3. HYDROCODONE BITARTRATE [Concomitant]
  4. AMARYL [Concomitant]
  5. DOXYCYCLINE HYCLATE [Concomitant]
     Dosage: CAPSULE
  6. METFORMIN HCL [Concomitant]
     Dosage: TABLET
  7. PREMARIN [Concomitant]
     Dosage: TAB
  8. ERBITUX [Suspect]
     Indication: COLORECTAL CANCER METASTATIC
     Dosage: STARTED 8 WEEKS AGO LAST DOSE ON 7FEB12
     Route: 042
     Dates: start: 20111212, end: 20120207
  9. IMODIUM MULTI-SYMPTOM RELIEF [Concomitant]
     Dosage: TABLET
  10. LOMOTIL [Concomitant]
     Dosage: 2.5-0.025 MG, TAB,
  11. VITAMIN C TABS [Concomitant]
  12. EXFORGE [Concomitant]
     Dosage: 5 MG - 160 MG TAB
  13. JANUVIA [Concomitant]
     Dosage: TABLET
  14. LEVAQUIN [Concomitant]
     Dosage: TABLET
  15. AVELOX [Concomitant]
     Dosage: TABLET
  16. CYMBALTA [Concomitant]
     Dosage: CAPSULE
  17. DYAZIDE [Concomitant]
     Dosage: 37.5 MG - 25 MG CAP
  18. VITAMIN B-12 [Concomitant]
     Dosage: TAB
  19. ALPRAZOLAM [Concomitant]
     Dosage: TABLET
  20. CALCIUM D3 SANDOZ [Concomitant]
     Dosage: 600 MG (1500)-200 UNIT TABLET
  21. MAGNESIUM OXIDE [Concomitant]
     Dosage: TABLET
  22. METAMUCIL-2 [Concomitant]
     Dosage: CAPSULE
  23. TOPROL-XL [Concomitant]
     Dosage: TAB
  24. XALATAN [Concomitant]
     Dosage: 0.005% EYE DROPS
  25. LEVEMIR [Concomitant]
     Route: 058
  26. MULTI-VITAMIN [Concomitant]
     Route: 048
  27. EXTRA STRENGTH TYLENOL [Concomitant]
     Dosage: TABLET

REACTIONS (6)
  - HYPOKALAEMIA [None]
  - DIABETES MELLITUS [None]
  - HYPOMAGNESAEMIA [None]
  - RASH [None]
  - POST PROCEDURAL HAEMORRHAGE [None]
  - PNEUMONIA [None]
